FAERS Safety Report 9395714 (Version 1)
Quarter: 2013Q3

REPORT INFORMATION
  Report Type: Spontaneous
  Country: US (occurrence: US)
  Receive Date: 20130711
  Receipt Date: 20130711
  Transmission Date: 20140515
  Serious: Yes (Hospitalization)
  Sender: FDA-Public Use
  Company Number: US-BRISTOL-MYERS SQUIBB COMPANY-18905448

PATIENT
  Sex: Male

DRUGS (1)
  1. NULOJIX [Suspect]
     Route: 042

REACTIONS (2)
  - Bacteraemia [Unknown]
  - Septic embolus [Unknown]
